FAERS Safety Report 6284702-0 (Version None)
Quarter: 2009Q3

REPORT INFORMATION
  Report Type: 
  Country: None (occurrence: None)
  Receive Date: 20090727
  Receipt Date: 20090624
  Transmission Date: 20100115
  Serious: No
  Sender: FDA-Public Use
  Company Number: US-BAYER-200924931NA

PATIENT
  Age: 25 Year
  Sex: Female
  Weight: 90 kg

DRUGS (4)
  1. MIRENA [Suspect]
     Indication: CONTRACEPTION
     Dosage: CONTINUOUS DELIVERY
     Route: 015
     Dates: start: 20090303, end: 20090624
  2. PROZAC [Concomitant]
  3. VITAMIN B-12 [Concomitant]
  4. MULTI-VITAMINS [Concomitant]

REACTIONS (2)
  - INTRA-UTERINE CONTRACEPTIVE DEVICE EXPELLED [None]
  - PROCEDURAL PAIN [None]
